FAERS Safety Report 13028516 (Version 15)
Quarter: 2020Q3

REPORT INFORMATION
  Report Type: Spontaneous
  Country: CA (occurrence: CA)
  Receive Date: 20161214
  Receipt Date: 20200712
  Transmission Date: 20201102
  Serious: Yes (Life-Threatening, Other)
  Sender: FDA-Public Use
  Company Number: PHHY2016CA170200

PATIENT
  Age: 45 Year
  Sex: Female

DRUGS (169)
  1. TACROLIMUS. [Suspect]
     Active Substance: TACROLIMUS
     Dosage: 2 MG, BID
     Route: 048
  2. GLICLAZIDE [Suspect]
     Active Substance: GLICLAZIDE
     Indication: PRODUCT USED FOR UNKNOWN INDICATION
     Dosage: UNK
     Route: 042
  3. INFLIXIMAB [Suspect]
     Active Substance: INFLIXIMAB
     Indication: PRODUCT USED FOR UNKNOWN INDICATION
     Route: 042
  4. ENBREL [Suspect]
     Active Substance: ETANERCEPT
     Indication: PRODUCT USED FOR UNKNOWN INDICATION
     Dosage: 50 MG, QW
     Route: 058
  5. ENBREL [Suspect]
     Active Substance: ETANERCEPT
     Dosage: 50 MG, QD
     Route: 058
  6. ENBREL [Suspect]
     Active Substance: ETANERCEPT
     Dosage: 25 MG, QD
     Route: 058
  7. ENBREL [Suspect]
     Active Substance: ETANERCEPT
     Dosage: 50 MG, QD
     Route: 058
  8. ENBREL [Suspect]
     Active Substance: ETANERCEPT
     Dosage: 25 MG, QD
     Route: 065
  9. ENBREL [Suspect]
     Active Substance: ETANERCEPT
     Dosage: 50 MG, QW
     Route: 058
  10. ENBREL [Suspect]
     Active Substance: ETANERCEPT
     Dosage: 20 MG, UNK
     Route: 058
  11. ANTITHYMOCYTE IMMUNOGLOBULIN [Suspect]
     Active Substance: THYMOCYTE IMMUNE GLOBULIN NOS
     Dosage: 60 MG/KG, UNK
     Route: 065
  12. DACLIZUMAB [Suspect]
     Active Substance: DACLIZUMAB
     Dosage: 5 MG, UNK
     Route: 042
  13. DACLIZUMAB [Suspect]
     Active Substance: DACLIZUMAB
     Dosage: 60 MG
     Route: 042
  14. REMICADE [Suspect]
     Active Substance: INFLIXIMAB
     Dosage: UNK
     Route: 042
  15. PROGRAF [Suspect]
     Active Substance: TACROLIMUS
     Indication: TRANSPLANT
     Dosage: 3 MG, BID
     Route: 048
  16. PROGRAF [Suspect]
     Active Substance: TACROLIMUS
     Dosage: 2.5 MG, QD
     Route: 048
  17. PROGRAF [Suspect]
     Active Substance: TACROLIMUS
     Dosage: 2 MG, BID
     Route: 048
  18. PROGRAF [Suspect]
     Active Substance: TACROLIMUS
     Dosage: 3 MG, BID
     Route: 048
  19. PROGRAF [Suspect]
     Active Substance: TACROLIMUS
     Dosage: 3 MG, QD
     Route: 065
  20. PROGRAF [Suspect]
     Active Substance: TACROLIMUS
     Dosage: 22 MG, BID
     Route: 048
  21. CELLCEPT [Suspect]
     Active Substance: MYCOPHENOLATE MOFETIL\MYCOPHENOLATE MOFETIL HYDROCHLORIDE
     Dosage: 1000 MG, BID
     Route: 065
  22. ANTI?HUMANLYMPHOZYTEN?GLOBULIN [Suspect]
     Active Substance: THYMOCYTE IMMUNE GLOBULIN NOS
     Dosage: 0.6 MG
     Route: 065
  23. ANTITHYMOCYTE IMMUNOGLOBULIN [Suspect]
     Active Substance: THYMOCYTE IMMUNE GLOBULIN NOS
     Dosage: 60 MG
     Route: 005
  24. ANTITHYMOCYTE IMMUNOGLOBULIN [Suspect]
     Active Substance: THYMOCYTE IMMUNE GLOBULIN NOS
     Dosage: UNK
     Route: 065
  25. TACROLIMUS. [Suspect]
     Active Substance: TACROLIMUS
     Dosage: 3 MG, BID
     Route: 048
  26. TACROLIMUS. [Suspect]
     Active Substance: TACROLIMUS
     Dosage: 2.5 MG, BID
     Route: 065
  27. ENBREL [Suspect]
     Active Substance: ETANERCEPT
     Dosage: 25 MG, QID
     Route: 048
  28. ENBREL [Suspect]
     Active Substance: ETANERCEPT
     Dosage: 50 MG, QW
     Route: 058
  29. ENBREL [Suspect]
     Active Substance: ETANERCEPT
     Dosage: 25 MG, QD
     Route: 058
  30. ENBREL [Suspect]
     Active Substance: ETANERCEPT
     Dosage: 25 MG, QID
     Route: 048
  31. ENBREL [Suspect]
     Active Substance: ETANERCEPT
     Dosage: 25 MG, QD
     Route: 058
  32. ENBREL [Suspect]
     Active Substance: ETANERCEPT
     Dosage: 25 MG
     Route: 058
  33. ANTITHYMOCYTE IMMUNOGLOBULIN [Suspect]
     Active Substance: THYMOCYTE IMMUNE GLOBULIN NOS
     Dosage: 6 MG/KG, UNK
     Route: 065
  34. ANTITHYMOCYTE IMMUNOGLOBULIN [Suspect]
     Active Substance: THYMOCYTE IMMUNE GLOBULIN NOS
     Dosage: 50 MG, UNK
     Route: 065
  35. ANTITHYMOCYTE IMMUNOGLOBULIN [Suspect]
     Active Substance: THYMOCYTE IMMUNE GLOBULIN NOS
     Dosage: 6 MG/KG, UNK
     Route: 065
  36. DACLIZUMAB [Suspect]
     Active Substance: DACLIZUMAB
     Dosage: UNK
     Route: 042
  37. REMICADE [Suspect]
     Active Substance: INFLIXIMAB
     Dosage: UNK
     Route: 042
  38. PROGRAF [Suspect]
     Active Substance: TACROLIMUS
     Dosage: 2 MG, (2 EVERY ONE HOUR)
     Route: 048
  39. PROGRAF [Suspect]
     Active Substance: TACROLIMUS
     Dosage: 2.5 MG, BID
     Route: 048
  40. PROGRAF [Suspect]
     Active Substance: TACROLIMUS
     Dosage: UNK
     Route: 048
  41. PROGRAF [Suspect]
     Active Substance: TACROLIMUS
     Dosage: 2 MG, Q12H
     Route: 048
  42. PROGRAF [Suspect]
     Active Substance: TACROLIMUS
     Dosage: 3 MG, Q12H
     Route: 048
  43. ANTI?HUMANLYMPHOZYTEN?GLOBULIN [Suspect]
     Active Substance: THYMOCYTE IMMUNE GLOBULIN NOS
     Dosage: 60 MG/KG
     Route: 005
  44. ANTI?HUMANLYMPHOZYTEN?GLOBULIN [Suspect]
     Active Substance: THYMOCYTE IMMUNE GLOBULIN NOS
     Dosage: 6 MG/KG
     Route: 065
  45. ANTITHYMOCYTE IMMUNOGLOBULIN [Suspect]
     Active Substance: THYMOCYTE IMMUNE GLOBULIN NOS
     Dosage: 60 MG
     Route: 065
  46. MYCOPHENOLATE MOFETIL. [Suspect]
     Active Substance: MYCOPHENOLATE MOFETIL
     Indication: TRANSPLANT
     Dosage: 1000 MG, Q12H
     Route: 048
  47. MYCOPHENOLATE MOFETIL. [Suspect]
     Active Substance: MYCOPHENOLATE MOFETIL
     Dosage: 2000 MG, QD
     Route: 048
  48. MYCOPHENOLATE MOFETIL. [Suspect]
     Active Substance: MYCOPHENOLATE MOFETIL
     Dosage: 1000 MG, BID
     Route: 048
  49. TACROLIMUS. [Suspect]
     Active Substance: TACROLIMUS
     Indication: TRANSPLANT
     Dosage: 2.5 MG, BID
     Route: 048
  50. ENBREL [Suspect]
     Active Substance: ETANERCEPT
     Dosage: 20 MG, UNK
     Route: 058
  51. ENBREL [Suspect]
     Active Substance: ETANERCEPT
     Dosage: 50 MG
     Route: 058
  52. ANTITHYMOCYTE IMMUNOGLOBULIN [Suspect]
     Active Substance: THYMOCYTE IMMUNE GLOBULIN NOS
     Indication: TRANSPLANT
     Dosage: 6 MG, UNK
     Route: 065
  53. ANTITHYMOCYTE IMMUNOGLOBULIN [Suspect]
     Active Substance: THYMOCYTE IMMUNE GLOBULIN NOS
     Dosage: 6 MG/KG, UNK
     Route: 065
  54. ANTITHYMOCYTE IMMUNOGLOBULIN [Suspect]
     Active Substance: THYMOCYTE IMMUNE GLOBULIN NOS
     Dosage: 50 MG, UNK
     Route: 065
  55. DACLIZUMAB [Suspect]
     Active Substance: DACLIZUMAB
     Indication: TRANSPLANT
     Dosage: UNK
     Route: 065
  56. DACLIZUMAB [Suspect]
     Active Substance: DACLIZUMAB
     Indication: PRODUCT USED FOR UNKNOWN INDICATION
     Dosage: 5 MG, UNK
     Route: 042
  57. DACLIZUMAB [Suspect]
     Active Substance: DACLIZUMAB
     Dosage: 5 MG/M2
     Route: 042
  58. DACLIZUMAB [Suspect]
     Active Substance: DACLIZUMAB
     Dosage: 60 MG
     Route: 042
  59. RAPAMUNE [Suspect]
     Active Substance: SIROLIMUS
     Indication: TRANSPLANT
     Dosage: UNK
     Route: 065
  60. PROGRAF [Suspect]
     Active Substance: TACROLIMUS
     Dosage: 11 MG, UNK
     Route: 048
  61. PROGRAF [Suspect]
     Active Substance: TACROLIMUS
     Dosage: 2 MG, UNK
     Route: 048
  62. PROGRAF [Suspect]
     Active Substance: TACROLIMUS
     Dosage: 2 MG, BID
     Route: 048
  63. PROGRAF [Suspect]
     Active Substance: TACROLIMUS
     Dosage: 6 MG, QD
     Route: 048
  64. ZENAPAX [Suspect]
     Active Substance: DACLIZUMAB
     Dosage: UNK
     Route: 042
  65. CELLCEPT [Suspect]
     Active Substance: MYCOPHENOLATE MOFETIL\MYCOPHENOLATE MOFETIL HYDROCHLORIDE
     Indication: TRANSPLANT
     Dosage: 1000 MG, BID
     Route: 048
  66. ANTI?HUMANLYMPHOZYTEN?GLOBULIN [Suspect]
     Active Substance: THYMOCYTE IMMUNE GLOBULIN NOS
     Dosage: UNK
     Route: 005
  67. ANTITHYMOCYTE IMMUNOGLOBULIN [Suspect]
     Active Substance: THYMOCYTE IMMUNE GLOBULIN NOS
     Dosage: 6 MG
     Route: 005
  68. ANTITHYMOCYTE IMMUNOGLOBULIN [Suspect]
     Active Substance: THYMOCYTE IMMUNE GLOBULIN NOS
     Dosage: 50 MG
     Route: 065
  69. ANTITHYMOCYTE IMMUNOGLOBULIN [Suspect]
     Active Substance: THYMOCYTE IMMUNE GLOBULIN NOS
     Dosage: 60 MG/KG
     Route: 065
  70. NEORAL [Suspect]
     Active Substance: CYCLOSPORINE
     Indication: TRANSPLANT
     Dosage: UNK
     Route: 065
  71. MYCOPHENOLATE MOFETIL. [Suspect]
     Active Substance: MYCOPHENOLATE MOFETIL
     Dosage: 1000 MG, BID
     Route: 065
  72. TACROLIMUS. [Suspect]
     Active Substance: TACROLIMUS
     Dosage: 2 MG, BID
     Route: 065
  73. ENBREL [Suspect]
     Active Substance: ETANERCEPT
     Dosage: 25 MG, QID
     Route: 048
  74. ENBREL [Suspect]
     Active Substance: ETANERCEPT
     Dosage: 50 MG, QW
     Route: 058
  75. ENBREL [Suspect]
     Active Substance: ETANERCEPT
     Dosage: 50 MG, QW
     Route: 058
  76. ENBREL [Suspect]
     Active Substance: ETANERCEPT
     Dosage: 50 MG, BID
     Route: 058
  77. ENBREL [Suspect]
     Active Substance: ETANERCEPT
     Dosage: 25 MG, QW
     Route: 058
  78. ENBREL [Suspect]
     Active Substance: ETANERCEPT
     Dosage: 25 MG, QID
     Route: 058
  79. ANTITHYMOCYTE IMMUNOGLOBULIN [Suspect]
     Active Substance: THYMOCYTE IMMUNE GLOBULIN NOS
     Dosage: UNK
     Route: 065
  80. ANTITHYMOCYTE IMMUNOGLOBULIN [Suspect]
     Active Substance: THYMOCYTE IMMUNE GLOBULIN NOS
     Dosage: 60 MG, UNK
     Route: 065
  81. DACLIZUMAB [Suspect]
     Active Substance: DACLIZUMAB
     Dosage: UNK
     Route: 042
  82. PROGRAF [Suspect]
     Active Substance: TACROLIMUS
     Dosage: 3 MG, BID
     Route: 048
  83. PROGRAF [Suspect]
     Active Substance: TACROLIMUS
     Dosage: 22 MG, BID
     Route: 048
  84. PROGRAF [Suspect]
     Active Substance: TACROLIMUS
     Dosage: 2 MG, QD
     Route: 048
  85. PROGRAF [Suspect]
     Active Substance: TACROLIMUS
     Dosage: 2.5 UNK
     Route: 048
  86. PROGRAF [Suspect]
     Active Substance: TACROLIMUS
     Dosage: 2 MG, QD
     Route: 048
  87. CELLCEPT [Suspect]
     Active Substance: MYCOPHENOLATE MOFETIL\MYCOPHENOLATE MOFETIL HYDROCHLORIDE
     Dosage: 2000 MG, QD
     Route: 048
  88. CELLCEPT [Suspect]
     Active Substance: MYCOPHENOLATE MOFETIL\MYCOPHENOLATE MOFETIL HYDROCHLORIDE
     Dosage: UNK
     Route: 048
  89. CELLCEPT [Suspect]
     Active Substance: MYCOPHENOLATE MOFETIL\MYCOPHENOLATE MOFETIL HYDROCHLORIDE
     Dosage: 1000 UNK
     Route: 048
  90. TACROLIMUS. [Suspect]
     Active Substance: TACROLIMUS
     Dosage: 6 MG, QD
     Route: 048
  91. TACROLIMUS. [Suspect]
     Active Substance: TACROLIMUS
     Dosage: 5 MG, QD
     Route: 048
  92. TACROLIMUS. [Suspect]
     Active Substance: TACROLIMUS
     Dosage: 5 MG, QD
     Route: 065
  93. TACROLIMUS. [Suspect]
     Active Substance: TACROLIMUS
     Dosage: 3 MG, BID
     Route: 065
  94. SULFASALAZINE. [Suspect]
     Active Substance: SULFASALAZINE
     Dosage: UNK
     Route: 065
  95. ENBREL [Suspect]
     Active Substance: ETANERCEPT
     Dosage: 50 MG
     Route: 058
  96. ENBREL [Suspect]
     Active Substance: ETANERCEPT
     Dosage: 50 MG, QID
     Route: 058
  97. ENBREL [Suspect]
     Active Substance: ETANERCEPT
     Dosage: 25 MG, QW
     Route: 058
  98. ANTITHYMOCYTE IMMUNOGLOBULIN [Suspect]
     Active Substance: THYMOCYTE IMMUNE GLOBULIN NOS
     Dosage: UNK
     Route: 065
  99. ANTITHYMOCYTE IMMUNOGLOBULIN [Suspect]
     Active Substance: THYMOCYTE IMMUNE GLOBULIN NOS
     Dosage: 60 MG/KG
     Route: 065
  100. DACLIZUMAB [Suspect]
     Active Substance: DACLIZUMAB
     Dosage: UNK
     Route: 042
  101. PROGRAF [Suspect]
     Active Substance: TACROLIMUS
     Dosage: 4 MG, 1 EVERY 1 HOURS
     Route: 048
  102. PROGRAF [Suspect]
     Active Substance: TACROLIMUS
     Dosage: UNK
     Route: 048
  103. ZENAPAX [Suspect]
     Active Substance: DACLIZUMAB
     Indication: PRODUCT USED FOR UNKNOWN INDICATION
     Dosage: 5 MG, UNK
     Route: 042
  104. CELLCEPT [Suspect]
     Active Substance: MYCOPHENOLATE MOFETIL\MYCOPHENOLATE MOFETIL HYDROCHLORIDE
     Dosage: 1000 MG, BID
     Route: 065
  105. CELLCEPT [Suspect]
     Active Substance: MYCOPHENOLATE MOFETIL\MYCOPHENOLATE MOFETIL HYDROCHLORIDE
     Dosage: 1000 MG, BID
     Route: 048
  106. ANTI?HUMANLYMPHOZYTEN?GLOBULIN [Suspect]
     Active Substance: THYMOCYTE IMMUNE GLOBULIN NOS
     Dosage: 6 MG/KG
     Route: 005
  107. ANTITHYMOCYTE IMMUNOGLOBULIN [Suspect]
     Active Substance: THYMOCYTE IMMUNE GLOBULIN NOS
     Dosage: 60 MG/KG
     Route: 005
  108. TACROLIMUS. [Suspect]
     Active Substance: TACROLIMUS
     Dosage: 11.1 UNK
     Route: 065
  109. ENBREL [Suspect]
     Active Substance: ETANERCEPT
     Dosage: 25 MG, QW
     Route: 058
  110. ENBREL [Suspect]
     Active Substance: ETANERCEPT
     Dosage: 50 MG, QD
     Route: 058
  111. ENBREL [Suspect]
     Active Substance: ETANERCEPT
     Dosage: 25 MG, QW
     Route: 058
  112. ANTITHYMOCYTE IMMUNOGLOBULIN [Suspect]
     Active Substance: THYMOCYTE IMMUNE GLOBULIN NOS
     Dosage: 6 MG/KG, UNK
     Route: 065
  113. DACLIZUMAB [Suspect]
     Active Substance: DACLIZUMAB
     Dosage: UNK
     Route: 065
  114. DACLIZUMAB [Suspect]
     Active Substance: DACLIZUMAB
     Dosage: UNK
     Route: 042
  115. REMICADE [Suspect]
     Active Substance: INFLIXIMAB
     Indication: PRODUCT USED FOR UNKNOWN INDICATION
     Dosage: UNK
     Route: 042
  116. PROGRAF [Suspect]
     Active Substance: TACROLIMUS
     Dosage: 1000 MG, BID
     Route: 048
  117. PROGRAF [Suspect]
     Active Substance: TACROLIMUS
     Dosage: UNK
     Route: 048
  118. PROGRAF [Suspect]
     Active Substance: TACROLIMUS
     Dosage: 6 MG, QD
     Route: 048
  119. PROGRAF [Suspect]
     Active Substance: TACROLIMUS
     Dosage: 11.3 MG, BID
     Route: 048
  120. PROGRAF [Suspect]
     Active Substance: TACROLIMUS
     Dosage: UNK
     Route: 048
  121. CELLCEPT [Suspect]
     Active Substance: MYCOPHENOLATE MOFETIL\MYCOPHENOLATE MOFETIL HYDROCHLORIDE
     Dosage: UNK
     Route: 065
  122. ANTI?HUMANLYMPHOZYTEN?GLOBULIN [Suspect]
     Active Substance: THYMOCYTE IMMUNE GLOBULIN NOS
     Indication: PRODUCT USED FOR UNKNOWN INDICATION
     Dosage: 6.0 MG
     Route: 065
  123. ANTI?HUMANLYMPHOZYTEN?GLOBULIN [Suspect]
     Active Substance: THYMOCYTE IMMUNE GLOBULIN NOS
     Dosage: 60 MG
     Route: 065
  124. TACROLIMUS. [Suspect]
     Active Substance: TACROLIMUS
     Dosage: 11.1 G, UNK
     Route: 048
  125. SULFASALAZINE. [Suspect]
     Active Substance: SULFASALAZINE
     Indication: RHEUMATOID ARTHRITIS
     Dosage: 1 G, UNK
     Route: 065
  126. TEMAZEPAM. [Suspect]
     Active Substance: TEMAZEPAM
     Indication: PRODUCT USED FOR UNKNOWN INDICATION
     Route: 042
  127. ENBREL [Suspect]
     Active Substance: ETANERCEPT
     Dosage: 50 MG, QID
     Route: 058
  128. ENBREL [Suspect]
     Active Substance: ETANERCEPT
     Dosage: 25 MG, UNK
     Route: 058
  129. ENBREL [Suspect]
     Active Substance: ETANERCEPT
     Dosage: 50 UNK
     Route: 065
  130. ANTITHYMOCYTE IMMUNOGLOBULIN [Suspect]
     Active Substance: THYMOCYTE IMMUNE GLOBULIN NOS
     Dosage: 6 UNK
     Route: 065
  131. DACLIZUMAB [Suspect]
     Active Substance: DACLIZUMAB
     Dosage: UNK
     Route: 042
  132. DACLIZUMAB [Suspect]
     Active Substance: DACLIZUMAB
     Dosage: 5 MG/M2
     Route: 042
  133. DACLIZUMAB [Suspect]
     Active Substance: DACLIZUMAB
     Dosage: 5 MG, UNK
     Route: 042
  134. PROGRAF [Suspect]
     Active Substance: TACROLIMUS
     Dosage: 2 MG, BID
     Route: 048
  135. PROGRAF [Suspect]
     Active Substance: TACROLIMUS
     Dosage: 2.5 MG, BID
     Route: 048
  136. PROGRAF [Suspect]
     Active Substance: TACROLIMUS
     Dosage: 2 MG, QD
     Route: 048
  137. PROGRAF [Suspect]
     Active Substance: TACROLIMUS
     Dosage: 4 MG, QD
     Route: 048
  138. PROGRAF [Suspect]
     Active Substance: TACROLIMUS
     Dosage: 2 MG, UNK
     Route: 065
  139. PROGRAF [Suspect]
     Active Substance: TACROLIMUS
     Dosage: 3 MG, UNK
     Route: 048
  140. PROGRAF [Suspect]
     Active Substance: TACROLIMUS
     Dosage: 6 MG, 1 EVERY 1 HOURS
     Route: 048
  141. PROGRAF [Suspect]
     Active Substance: TACROLIMUS
     Dosage: 2 MG, QD
     Route: 048
  142. CELLCEPT [Suspect]
     Active Substance: MYCOPHENOLATE MOFETIL\MYCOPHENOLATE MOFETIL HYDROCHLORIDE
     Dosage: 1000 MG, BID
     Route: 048
  143. ANTI?HUMANLYMPHOZYTEN?GLOBULIN [Suspect]
     Active Substance: THYMOCYTE IMMUNE GLOBULIN NOS
     Dosage: 50 MG
     Route: 005
  144. ANTITHYMOCYTE IMMUNOGLOBULIN [Suspect]
     Active Substance: THYMOCYTE IMMUNE GLOBULIN NOS
     Indication: TRANSPLANT
     Dosage: 50 MG
     Route: 005
  145. ANTITHYMOCYTE IMMUNOGLOBULIN [Suspect]
     Active Substance: THYMOCYTE IMMUNE GLOBULIN NOS
     Dosage: 50 MG
     Route: 058
  146. ANTITHYMOCYTE IMMUNOGLOBULIN [Suspect]
     Active Substance: THYMOCYTE IMMUNE GLOBULIN NOS
     Dosage: 6 MG/KG
     Route: 005
  147. MYCOPHENOLATE MOFETIL. [Suspect]
     Active Substance: MYCOPHENOLATE MOFETIL
     Dosage: UNK
     Route: 065
  148. MYCOPHENOLATE MOFETIL. [Suspect]
     Active Substance: MYCOPHENOLATE MOFETIL
     Dosage: 1000 MG, BID
     Route: 048
  149. TACROLIMUS. [Suspect]
     Active Substance: TACROLIMUS
     Dosage: 3 MG, BID
     Route: 065
  150. TACROLIMUS. [Suspect]
     Active Substance: TACROLIMUS
     Dosage: 6 MG, QD
     Route: 065
  151. ENBREL [Suspect]
     Active Substance: ETANERCEPT
     Dosage: 20 MG, UNK
     Route: 058
  152. ENBREL [Suspect]
     Active Substance: ETANERCEPT
     Dosage: 50 MG, BID
     Route: 058
  153. ENBREL [Suspect]
     Active Substance: ETANERCEPT
     Dosage: 20 MG, UNK
     Route: 058
  154. ANTITHYMOCYTE IMMUNOGLOBULIN [Suspect]
     Active Substance: THYMOCYTE IMMUNE GLOBULIN NOS
     Dosage: 50 MG, UNK
     Route: 065
  155. ANTITHYMOCYTE IMMUNOGLOBULIN [Suspect]
     Active Substance: THYMOCYTE IMMUNE GLOBULIN NOS
     Dosage: 60 MG/KG, UNK
     Route: 065
  156. ANTITHYMOCYTE IMMUNOGLOBULIN [Suspect]
     Active Substance: THYMOCYTE IMMUNE GLOBULIN NOS
     Dosage: 6 MG/KG
     Route: 065
  157. ANTITHYMOCYTE IMMUNOGLOBULIN [Suspect]
     Active Substance: THYMOCYTE IMMUNE GLOBULIN NOS
     Dosage: 6 MG/KG
     Route: 065
  158. PROGRAF [Suspect]
     Active Substance: TACROLIMUS
     Dosage: 2.5 MG, BID
     Route: 048
  159. PROGRAF [Suspect]
     Active Substance: TACROLIMUS
     Dosage: 3 MG, (2 EVERY ONE HOUR)
     Route: 048
  160. PROGRAF [Suspect]
     Active Substance: TACROLIMUS
     Dosage: 6 MG, QD
     Route: 048
  161. PROGRAF [Suspect]
     Active Substance: TACROLIMUS
     Dosage: 4 MG, QD
     Route: 048
  162. PROGRAF [Suspect]
     Active Substance: TACROLIMUS
     Dosage: 5 MG, QD
     Route: 048
  163. PROGRAF [Suspect]
     Active Substance: TACROLIMUS
     Dosage: 4 MG, QD
     Route: 048
  164. ZENAPAX [Suspect]
     Active Substance: DACLIZUMAB
     Dosage: UNK
     Route: 042
  165. CELLCEPT [Suspect]
     Active Substance: MYCOPHENOLATE MOFETIL\MYCOPHENOLATE MOFETIL HYDROCHLORIDE
     Dosage: 2000 MG, QD
     Route: 048
  166. CELLCEPT [Suspect]
     Active Substance: MYCOPHENOLATE MOFETIL\MYCOPHENOLATE MOFETIL HYDROCHLORIDE
     Dosage: 2000 UNK, QD
     Route: 065
  167. CELLCEPT [Suspect]
     Active Substance: MYCOPHENOLATE MOFETIL\MYCOPHENOLATE MOFETIL HYDROCHLORIDE
     Dosage: 1000 MG, QID
     Route: 048
  168. ANTI?HUMANLYMPHOZYTEN?GLOBULIN [Suspect]
     Active Substance: THYMOCYTE IMMUNE GLOBULIN NOS
     Dosage: 60 MG
     Route: 005
  169. ANTITHYMOCYTE IMMUNOGLOBULIN [Suspect]
     Active Substance: THYMOCYTE IMMUNE GLOBULIN NOS
     Dosage: 6 MG/KG
     Route: 065

REACTIONS (16)
  - Transplant dysfunction [Not Recovered/Not Resolved]
  - Liver function test abnormal [Not Recovered/Not Resolved]
  - Incorrect route of product administration [Not Recovered/Not Resolved]
  - Loss of personal independence in daily activities [Not Recovered/Not Resolved]
  - Condition aggravated [Not Recovered/Not Resolved]
  - Pneumonia [Not Recovered/Not Resolved]
  - Alopecia [Not Recovered/Not Resolved]
  - Acne [Not Recovered/Not Resolved]
  - Rheumatoid arthritis [Not Recovered/Not Resolved]
  - Transplant rejection [Not Recovered/Not Resolved]
  - Ovarian cyst [Not Recovered/Not Resolved]
  - Pain [Not Recovered/Not Resolved]
  - Sleep disorder due to general medical condition, insomnia type [Not Recovered/Not Resolved]
  - Product use issue [Not Recovered/Not Resolved]
  - Drug ineffective [Not Recovered/Not Resolved]
  - Overdose [Not Recovered/Not Resolved]
